FAERS Safety Report 9370185 (Version 1)
Quarter: 2013Q2

REPORT INFORMATION
  Report Type: Spontaneous
  Country: US (occurrence: US)
  Receive Date: 20130626
  Receipt Date: 20130626
  Transmission Date: 20140414
  Serious: Yes (Hospitalization)
  Sender: FDA-Public Use
  Company Number: US-ASTRAZENECA-2013SE47200

PATIENT
  Age: 39 Year
  Sex: Male

DRUGS (1)
  1. BRILINTA [Suspect]
     Dosage: 180MG NR
     Route: 048

REACTIONS (3)
  - Chest pain [Unknown]
  - Thrombosis in device [Unknown]
  - Drug dose omission [Unknown]
